FAERS Safety Report 5619823-6 (Version None)
Quarter: 2008Q1

REPORT INFORMATION
  Report Type: 
  Country: None (occurrence: None)
  Receive Date: 20080208
  Receipt Date: 20080131
  Transmission Date: 20080703
  Serious: Yes (Hospitalization)
  Sender: FDA-Public Use
  Company Number: PHBS2008IT01616

PATIENT
  Age: 51 Year
  Sex: Male

DRUGS (1)
  1. TOLEP [Suspect]
     Indication: EPILEPSY
     Dosage: 750MG/DAY
     Route: 048
     Dates: start: 20030615, end: 20071220

REACTIONS (1)
  - ARTERIAL DISORDER [None]
